FAERS Safety Report 13534698 (Version 2)
Quarter: 2017Q3

REPORT INFORMATION
  Report Type: Report from Study
  Country: US (occurrence: US)
  Receive Date: 20170511
  Receipt Date: 20170710
  Transmission Date: 20171127
  Serious: Yes (Hospitalization, Disabling, Other)
  Sender: FDA-Public Use
  Company Number: US-009507513-1705USA004084

PATIENT
  Age: 56 Year
  Sex: Male

DRUGS (12)
  1. SYSTANE (HYPROMELLOSE 2910 (4000 MPA.S)) [Concomitant]
     Active Substance: HYPROMELLOSE 2910 (4000 MPA.S)
     Route: 047
  2. LEVITRA [Concomitant]
     Active Substance: VARDENAFIL HYDROCHLORIDE TRIHYDRATE
  3. GABAPENTIN. [Concomitant]
     Active Substance: GABAPENTIN
  4. OMEPRAZOLE. [Concomitant]
     Active Substance: OMEPRAZOLE
  5. ZOFRAN [Concomitant]
     Active Substance: ONDANSETRON HYDROCHLORIDE
  6. VITAMIN D [Concomitant]
     Active Substance: CHOLECALCIFEROL
  7. ATORVASTATIN [Concomitant]
     Active Substance: ATORVASTATIN
  8. FINASTERIDE. [Concomitant]
     Active Substance: FINASTERIDE
     Route: 048
  9. MELOXICAM. [Concomitant]
     Active Substance: MELOXICAM
     Route: 048
  10. PEMBROLIZUMAB. [Suspect]
     Active Substance: PEMBROLIZUMAB
     Indication: NON-SMALL CELL LUNG CANCER
     Dosage: 200 MG, Q3W
     Route: 042
     Dates: start: 20170115
  11. TAMSULOSIN HYDROCHLORIDE. [Concomitant]
     Active Substance: TAMSULOSIN HYDROCHLORIDE
  12. LIDOCAINE. [Concomitant]
     Active Substance: LIDOCAINE
     Dosage: FORMULATION: PATCH

REACTIONS (24)
  - Dermatitis allergic [Unknown]
  - Skin exfoliation [Unknown]
  - Dry skin [Unknown]
  - Hypercoagulation [Unknown]
  - Transient ischaemic attack [Unknown]
  - Breakthrough pain [Unknown]
  - Dyspnoea [Unknown]
  - Body temperature fluctuation [Unknown]
  - Fatigue [Not Recovered/Not Resolved]
  - Asthenia [Unknown]
  - Nausea [Unknown]
  - Tachycardia [Unknown]
  - Pain in extremity [Unknown]
  - Chest pain [Unknown]
  - Pain in extremity [Unknown]
  - Scrotal irritation [Unknown]
  - Thrombotic stroke [Unknown]
  - Blindness [Unknown]
  - Malaise [Unknown]
  - Chills [Unknown]
  - Skin irritation [Unknown]
  - Pruritus [Unknown]
  - Vital capacity abnormal [Unknown]
  - Back pain [Unknown]

NARRATIVE: CASE EVENT DATE: 2017
